FAERS Safety Report 8311539-0 (Version None)
Quarter: 2012Q2

REPORT INFORMATION
  Report Type: 
  Country: None (occurrence: None)
  Receive Date: 20120425
  Receipt Date: 20120420
  Transmission Date: 20120825
  Serious: Yes (Other)
  Sender: FDA-Public Use
  Company Number: US-TEVA-334255USA

PATIENT
  Sex: Female

DRUGS (1)
  1. SUCRALFATE [Suspect]

REACTIONS (5)
  - OESOPHAGITIS [None]
  - OESOPHAGEAL IRRITATION [None]
  - DRUG INEFFECTIVE [None]
  - DYSPEPSIA [None]
  - WRONG TECHNIQUE IN DRUG USAGE PROCESS [None]
